FAERS Safety Report 13104864 (Version 1)
Quarter: 2017Q1

REPORT INFORMATION
  Report Type: Spontaneous
  Country: FR (occurrence: FR)
  Receive Date: 20170111
  Receipt Date: 20170111
  Transmission Date: 20170428
  Serious: Yes (Hospitalization, Disabling)
  Sender: FDA-Public Use
  Company Number: FR-ABBVIE-17P-056-1835606-00

PATIENT
  Age: 70 Year
  Sex: Male

DRUGS (1)
  1. DEPAKOTE [Suspect]
     Active Substance: DIVALPROEX SODIUM
     Indication: BIPOLAR DISORDER
     Route: 065
     Dates: end: 201612

REACTIONS (6)
  - Cognitive disorder [Recovered/Resolved]
  - Cerebellar syndrome [Recovered/Resolved]
  - Myoclonus [Recovered/Resolved]
  - Hallucination, visual [Recovered/Resolved]
  - Cerebral atrophy [Not Recovered/Not Resolved]
  - Gait disturbance [Recovered/Resolved]

NARRATIVE: CASE EVENT DATE: 201609
